FAERS Safety Report 4440243-4 (Version None)
Quarter: 2004Q3

REPORT INFORMATION
  Report Type: 
  Country: None (occurrence: None)
  Receive Date: 20040903
  Receipt Date: 20040112
  Transmission Date: 20050211
  Serious: No
  Sender: FDA-Public Use
  Company Number: US-GLAXOSMITHKLINE-A0492929A

PATIENT
  Age: 67 Year
  Sex: Female

DRUGS (2)
  1. REQUIP [Suspect]
     Indication: ILL-DEFINED DISORDER
     Dosage: 2.5MG THREE TIMES PER DAY
     Route: 048
  2. CARBIDOPA AND LEVODOPA [Suspect]
     Indication: ILL-DEFINED DISORDER
     Route: 048

REACTIONS (4)
  - DYSTONIA [None]
  - HEADACHE [None]
  - PALPITATIONS [None]
  - PHOTOPHOBIA [None]
